FAERS Safety Report 7411382-0 (Version None)
Quarter: 2011Q2

REPORT INFORMATION
  Report Type: 
  Country: None (occurrence: None)
  Receive Date: 20110413
  Receipt Date: 20100709
  Transmission Date: 20111010
  Serious: No
  Sender: FDA-Public Use
  Company Number: US-BRISTOL-MYERS SQUIBB COMPANY-15180888

PATIENT
  Age: 69 Year
  Sex: Female

DRUGS (12)
  1. COZAAR [Suspect]
  2. ERBITUX [Suspect]
     Indication: COLON CANCER
     Dates: start: 20100121
  3. COMBIVENT [Suspect]
  4. NAPROXEN [Suspect]
  5. SANDOSTATIN [Suspect]
  6. PERCOCET [Suspect]
  7. CRESTOR [Suspect]
  8. ADVAIR DISKUS 100/50 [Suspect]
  9. GLIMEPIRIDE [Suspect]
  10. ALBUTEROL [Suspect]
  11. METOPROLOL TARTRATE [Suspect]
  12. METHOCARBAMOL [Suspect]

REACTIONS (1)
  - CHEST PAIN [None]
